FAERS Safety Report 9334371 (Version 3)
Quarter: 2014Q2

REPORT INFORMATION
  Report Type: Spontaneous
  Country: US (occurrence: US)
  Receive Date: 20130606
  Receipt Date: 20140519
  Transmission Date: 20141212
  Serious: No
  Sender: FDA-Public Use
  Company Number: US-AMGEN-USASP2013028612

PATIENT
  Age: 72 Year
  Sex: Female

DRUGS (4)
  1. PROLIA [Suspect]
     Indication: OSTEOPOROSIS POSTMENOPAUSAL
     Dosage: UNK
     Route: 065
     Dates: start: 20121029
  2. FEXOFENADINE [Concomitant]
  3. DECONGESTANT                       /00070002/ [Concomitant]
  4. VITAMIN D                          /00107901/ [Concomitant]
     Dosage: UNK UNK, QWK

REACTIONS (7)
  - Mobility decreased [Not Recovered/Not Resolved]
  - Bone disorder [Unknown]
  - Jaw disorder [Unknown]
  - Arthralgia [Not Recovered/Not Resolved]
  - Sinus disorder [Unknown]
  - Inappropriate schedule of drug administration [Unknown]
  - Musculoskeletal pain [Not Recovered/Not Resolved]
